FAERS Safety Report 23521259 (Version 1)
Quarter: 2024Q1

REPORT INFORMATION
  Report Type: Spontaneous
  Country: IR (occurrence: IR)
  Receive Date: 20240214
  Receipt Date: 20240214
  Transmission Date: 20240410
  Serious: Yes (Death, Life-Threatening, Hospitalization, Other)
  Sender: FDA-Public Use
  Company Number: IR-ASTELLAS-2024EU001229

PATIENT
  Age: 69 Year
  Sex: Male

DRUGS (2)
  1. TACROLIMUS [Suspect]
     Active Substance: TACROLIMUS
     Indication: Liver transplant
     Dosage: UNK UNK, UNKNOWN FREQ.
     Route: 065
     Dates: start: 2020
  2. METHYLPREDNISOLONE [Suspect]
     Active Substance: METHYLPREDNISOLONE
     Indication: Liver transplant
     Dosage: UNK UNK, UNKNOWN FREQ.
     Route: 065
     Dates: start: 2020

REACTIONS (5)
  - General physical health deterioration [Fatal]
  - Respiratory failure [Fatal]
  - COVID-19 pneumonia [Fatal]
  - Sepsis [Fatal]
  - Pseudomonal sepsis [Unknown]

NARRATIVE: CASE EVENT DATE: 20200101
